FAERS Safety Report 24747089 (Version 1)
Quarter: 2024Q4

REPORT INFORMATION
  Report Type: Spontaneous
  Country: US (occurrence: US)
  Receive Date: 20241218
  Receipt Date: 20241218
  Transmission Date: 20250114
  Serious: Yes (Other)
  Sender: AUROBINDO
  Company Number: US-AUROBINDO-AUR-APL-2024-061241

PATIENT
  Age: 68 Year
  Sex: Male

DRUGS (6)
  1. METHYLPREDNISOLONE [Suspect]
     Active Substance: METHYLPREDNISOLONE
     Indication: Waldenstrom^s macroglobulinaemia
     Dosage: UNK
     Route: 042
  2. PREDNISONE [Concomitant]
     Active Substance: PREDNISONE
     Indication: Waldenstrom^s macroglobulinaemia
     Dosage: UNK
     Route: 048
  3. Immunoglobulin [Concomitant]
     Indication: Waldenstrom^s macroglobulinaemia
     Dosage: UNK
     Route: 042
  4. RITUXIMAB [Concomitant]
     Active Substance: RITUXIMAB
     Indication: Waldenstrom^s macroglobulinaemia
     Dosage: 1000 MILLIGRAM
     Route: 042
  5. IBRUTINIB [Concomitant]
     Active Substance: IBRUTINIB
     Indication: Waldenstrom^s macroglobulinaemia
     Dosage: 420 MILLIGRAM, ONCE A DAY [420 MG ORAL DOSE, ONCE DAILY, FOR TWENTYEIGHT DAYS]
     Route: 048
  6. VENETOCLAX [Concomitant]
     Active Substance: VENETOCLAX
     Indication: Waldenstrom^s macroglobulinaemia
     Dosage: 400 MILLIGRAM, CYCLICAL [400 MG ORAL DOSE WAS ADDED FROM CYCLE 2 FOR TWENTY-EIGHT DAYS (SUCCESSFULLY
     Route: 048

REACTIONS (1)
  - Disease progression [Unknown]
